FAERS Safety Report 8372559-3 (Version None)
Quarter: 2012Q2

REPORT INFORMATION
  Report Type: 
  Country: None (occurrence: None)
  Receive Date: 20120521
  Receipt Date: 20120515
  Transmission Date: 20120825
  Serious: Yes (Other)
  Sender: FDA-Public Use
  Company Number: PHEH2012US010392

PATIENT
  Sex: Female

DRUGS (2)
  1. RECLAST [Suspect]
     Route: 042
  2. HUMIRA [Concomitant]

REACTIONS (5)
  - PALPITATIONS [None]
  - BLOOD PRESSURE INCREASED [None]
  - HEADACHE [None]
  - HEMIPLEGIA [None]
  - PYREXIA [None]
